FAERS Safety Report 10218591 (Version 2)
Quarter: 2014Q2

REPORT INFORMATION
  Report Type: Spontaneous
  Country: US (occurrence: US)
  Receive Date: 20140605
  Receipt Date: 20140611
  Transmission Date: 20141212
  Serious: No
  Sender: FDA-Public Use
  Company Number: US-PFIZER INC-2014149446

PATIENT
  Sex: Female

DRUGS (3)
  1. LIPITOR [Suspect]
  2. CRESTOR [Suspect]
  3. CODEINE [Suspect]

REACTIONS (1)
  - Drug hypersensitivity [Unknown]
